FAERS Safety Report 6681536-X (Version None)
Quarter: 2010Q2

REPORT INFORMATION
  Report Type: 
  Country: None (occurrence: None)
  Receive Date: 20100414
  Receipt Date: 20100402
  Transmission Date: 20101027
  Serious: Yes (Hospitalization)
  Sender: FDA-Public Use
  Company Number: PHHO2010AU05585

PATIENT
  Sex: Female
  Weight: 79.1 kg

DRUGS (3)
  1. CARBAMAZEPINE [Suspect]
     Indication: EPILEPSY
     Dosage: 1000 MG DAILY
     Route: 048
  2. LEVETIRACETAM [Concomitant]
  3. CLONAZEPAM [Concomitant]

REACTIONS (5)
  - CELLULITIS [None]
  - FALL [None]
  - GRAND MAL CONVULSION [None]
  - SKIN LACERATION [None]
  - WOUND INFECTION [None]
